FAERS Safety Report 8969299 (Version 2)
Quarter: 2013Q1

REPORT INFORMATION
  Report Type: Spontaneous
  Country: BR (occurrence: BR)
  Receive Date: 20121217
  Receipt Date: 20130115
  Transmission Date: 20140127
  Serious: Yes (Other)
  Sender: FDA-Public Use
  Company Number: PHHY2010BR60326

PATIENT
  Age: 75 Year
  Sex: Male

DRUGS (6)
  1. FORASEQ [Suspect]
     Indication: ASTHMA
     Dosage: 2 UKN, UNK
  2. FORASEQ [Suspect]
     Dosage: 1 DF, DAILY (12/200 UG, ONCE IN THE MORNING AND ONCE AT NIGHT)
  3. OMEPRAZOLE [Suspect]
     Indication: GASTRIC DISORDER
  4. PANTOPRAZOLE [Suspect]
     Indication: GASTRIC DISORDER
  5. ASPIRIN [Concomitant]
     Indication: CATHETER PLACEMENT
     Dosage: 81 MG, DAILY
     Route: 048
  6. BROMAZEPAM [Concomitant]
     Indication: SLEEP DISORDER
     Dosage: 1 DF, DAILY
     Route: 048

REACTIONS (6)
  - Coronary artery disease [Unknown]
  - Asthma [Unknown]
  - Discomfort [Unknown]
  - Wrong technique in drug usage process [Unknown]
  - Device malfunction [Unknown]
  - Incorrect route of drug administration [Unknown]
